FAERS Safety Report 5064966-1 (Version None)
Quarter: 2006Q3

REPORT INFORMATION
  Report Type: 
  Country: None (occurrence: None)
  Receive Date: 20060726
  Receipt Date: 20060711
  Transmission Date: 20061208
  Serious: Yes (Hospitalization, Other)
  Sender: FDA-Public Use
  Company Number: US200607001902

PATIENT
  Age: 70 Year
  Sex: Female

DRUGS (5)
  1. HUMALOG MIX 75/25 [Suspect]
     Dosage: 50 U, EACH MORNING
  2. HUMALOG [Suspect]
     Dosage: 15 U, AT BEDTIME; SEE IMAGE
  3. HUMULIN N [Suspect]
     Dosage: 15 U, AT BEDTIME; SEE IMAGE
     Dates: start: 19950101, end: 20060601
  4. HUMULIN N [Suspect]
     Dosage: 15 U, AT BEDTIME; SEE IMAGE
     Dates: start: 19950101
  5. GLUCOPHAGE [Concomitant]

REACTIONS (8)
  - BLOOD GLUCOSE FLUCTUATION [None]
  - HEMIPARESIS [None]
  - INSULIN RESISTANCE [None]
  - SILENT MYOCARDIAL INFARCTION [None]
  - STRESS [None]
  - TRANSIENT ISCHAEMIC ATTACK [None]
  - VERTIGO [None]
  - WEIGHT INCREASED [None]
